FAERS Safety Report 4798077-7 (Version None)
Quarter: 2005Q4

REPORT INFORMATION
  Report Type: 
  Country: None (occurrence: None)
  Receive Date: 20051011
  Receipt Date: 20051011
  Transmission Date: 20060501
  Serious: Yes (Other)
  Sender: FDA-Public Use
  Company Number: None

PATIENT
  Age: 61 Year
  Sex: Male
  Weight: 86.1834 kg

DRUGS (3)
  1. METOPROLOL 100 MG MAJOR PHARMACEUTICALS [Suspect]
     Indication: ARRHYTHMIA
     Dosage: 100 MG DAILY PO
     Route: 048
     Dates: start: 19940101
  2. COUMADIN [Concomitant]
  3. ASPIRIN [Concomitant]

REACTIONS (2)
  - HEART RATE IRREGULAR [None]
  - INCORRECT DOSE ADMINISTERED [None]
